FAERS Safety Report 18049755 (Version 1)
Quarter: 2020Q3

REPORT INFORMATION
  Report Type: Spontaneous
  Country: US (occurrence: US)
  Receive Date: 20200721
  Receipt Date: 20200721
  Transmission Date: 20201103
  Serious: Yes (Death)
  Sender: FDA-Public Use
  Company Number: None

PATIENT
  Age: 80 Year
  Sex: Female

DRUGS (8)
  1. IBRANCE [Suspect]
     Active Substance: PALBOCICLIB
     Indication: BREAST CANCER
     Route: 048
     Dates: start: 20200124
  2. GABAPENTIN. [Concomitant]
     Active Substance: GABAPENTIN
  3. QUETIAPINE. [Concomitant]
     Active Substance: QUETIAPINE
  4. LOPERAMIDE [Concomitant]
     Active Substance: LOPERAMIDE
  5. ELIQUIS [Concomitant]
     Active Substance: APIXABAN
  6. PANTOPRAZOLE [Concomitant]
     Active Substance: PANTOPRAZOLE
  7. LISINOPRIL. [Concomitant]
     Active Substance: LISINOPRIL
  8. VIT. D [Concomitant]

REACTIONS (1)
  - Death [None]
